FAERS Safety Report 7278030-4 (Version None)
Quarter: 2011Q1

REPORT INFORMATION
  Report Type: 
  Country: None (occurrence: None)
  Receive Date: 20110207
  Receipt Date: 20110202
  Transmission Date: 20110831
  Serious: Yes (Hospitalization)
  Sender: FDA-Public Use
  Company Number: JP-SANOFI-AVENTIS-2011SA007076

PATIENT
  Sex: Female

DRUGS (4)
  1. DOXORUBICIN HCL [Concomitant]
     Indication: BREAST CANCER
  2. TAXOTERE [Suspect]
     Indication: BREAST CANCER
     Route: 041
  3. TAXOTERE [Suspect]
     Route: 041
  4. CYCLOPHOSPHAMIDE [Concomitant]
     Indication: BREAST CANCER

REACTIONS (7)
  - ASCITES [None]
  - GENERALISED OEDEMA [None]
  - HYPOALBUMINAEMIA [None]
  - SENSORY DISTURBANCE [None]
  - PLEURAL EFFUSION [None]
  - HEPATIC FUNCTION ABNORMAL [None]
  - PALMAR-PLANTAR ERYTHRODYSAESTHESIA SYNDROME [None]
